FAERS Safety Report 5160426-8 (Version None)
Quarter: 2007Q1

REPORT INFORMATION
  Report Type: 
  Country: None (occurrence: None)
  Receive Date: 20061120
  Receipt Date: 20061108
  Transmission Date: 20070707
  Serious: Yes (Life-Threatening, Hospitalization)
  Sender: FDA-Public Use
  Company Number: 2006-05761

PATIENT
  Age: 55 Year
  Sex: Female
  Weight: 64.4 kg

DRUGS (17)
  1. CYCLOBENZAPRINE HCL [Suspect]
     Indication: HEADACHE
     Dosage: 10 MG, PRN, ORAL
     Route: 048
     Dates: start: 20051206
  2. FENTANYL CITRATE [Suspect]
     Indication: BREAKTHROUGH PAIN
     Dosage: 800 UG, PRN, BUCCAL
     Route: 002
     Dates: start: 20051122, end: 20060903
  3. OXYCODONE HCL [Suspect]
     Indication: PAIN
     Dosage: 60 MG, DAILY, ORAL
     Route: 048
     Dates: start: 20060411
  4. ATENOLOL [Concomitant]
  5. FUROSEMIDE [Concomitant]
  6. POTASSIUM CHLORIDE [Concomitant]
  7. CONJEGATED ESTROGEN [Concomitant]
  8. TEMAZEPAM [Concomitant]
  9. CLONAZEPAM [Concomitant]
  10. BUTALBITAL/CAFFIENE [Concomitant]
  11. PROMETHAZINE [Concomitant]
  12. ACETAMINOPHEN W/OXYCODONE (PARACETAMOL) [Concomitant]
  13. NORTRIPTYLINE HCL [Concomitant]
  14. ASPIRIN WITH DIPYRIDAMOLE [Concomitant]
  15. VITAMIN TAB [Concomitant]
  16. RANITIDINE [Concomitant]
  17. PREGABALIN [Concomitant]

REACTIONS (8)
  - ACCIDENTAL OVERDOSE [None]
  - ATRIOVENTRICULAR BLOCK FIRST DEGREE [None]
  - BLOOD PRESSURE SYSTOLIC INCREASED [None]
  - LIFE SUPPORT [None]
  - LOSS OF CONSCIOUSNESS [None]
  - PUPIL FIXED [None]
  - RESPIRATORY ARREST [None]
  - RESPIRATORY RATE DECREASED [None]
